FAERS Safety Report 4779875-2 (Version None)
Quarter: 2005Q3

REPORT INFORMATION
  Report Type: 
  Country: None (occurrence: None)
  Receive Date: 20050914
  Receipt Date: 20040923
  Transmission Date: 20060218
  Serious: Yes (Death, Hospitalization)
  Sender: FDA-Public Use
  Company Number: 163-20785-04090580

PATIENT
  Age: 58 Year
  Sex: Female
  Weight: 66 kg

DRUGS (4)
  1. THALOMID [Suspect]
     Indication: NON-SMALL CELL LUNG CANCER
     Dosage: 200MG WITH WEEKLY TITRATION OF 100MG UP TO 1000 MG, DAILY X21 DAYS, ORAL
     Route: 048
     Dates: start: 20031001, end: 20040916
  2. PACLITAXEL [Suspect]
     Indication: NON-SMALL CELL LUNG CANCER
     Dosage: 225 MG/M2, 3 HOURS ON DAY 1 EVERY 21 DAYS X2, INTRAVENOUS
     Route: 042
     Dates: start: 20031001
  3. CARBOPLATIN [Suspect]
     Indication: NON-SMALL CELL LUNG CANCER
     Dosage: AUC=6 OVER 15-30 MIN. ON DAY 1 EVERY 21 DAYS X2, INTRAVENOUS
     Route: 042
     Dates: start: 20031001
  4. RADIATION THERAPY [Suspect]
     Indication: NON-SMALL CELL LUNG CANCER
     Dosage: 60GY OVER 6 WEEKS BEGINNING BETWEEN DAYS 43-50

REACTIONS (10)
  - ATRIOVENTRICULAR BLOCK [None]
  - CARDIAC ARREST [None]
  - CONDUCTION DISORDER [None]
  - CONVULSION [None]
  - DEATH [None]
  - DYSPNOEA [None]
  - HYPOXIA [None]
  - MYOCARDIAL INFARCTION [None]
  - PERICARDIAL EFFUSION [None]
  - SINUS BRADYCARDIA [None]
